FAERS Safety Report 9746656 (Version 1)
Quarter: 2013Q4

REPORT INFORMATION
  Report Type: Spontaneous
  Country: US (occurrence: US)
  Receive Date: 20131211
  Receipt Date: 20131211
  Transmission Date: 20140711
  Serious: No
  Sender: FDA-Public Use
  Company Number: US-PFIZER INC-2013353052

PATIENT
  Sex: Female

DRUGS (3)
  1. LEVOTHYROXINE SODIUM [Suspect]
     Dosage: UNK
  2. GLIPIZIDE [Suspect]
     Dosage: UNK
  3. AMLODIPINE BESILATE [Suspect]
     Dosage: UNK

REACTIONS (4)
  - Stress [Unknown]
  - Malaise [Unknown]
  - Blood pressure increased [Unknown]
  - Influenza like illness [Unknown]
